FAERS Safety Report 19656323 (Version 1)
Quarter: 2021Q3

REPORT INFORMATION
  Report Type: Spontaneous
  Country: US (occurrence: US)
  Receive Date: 20210803
  Receipt Date: 20210803
  Transmission Date: 20211014
  Serious: Yes (Hospitalization)
  Sender: FDA-Public Use
  Company Number: None

PATIENT
  Age: 45 Year
  Sex: Female
  Weight: 93.4 kg

DRUGS (3)
  1. CAMPTOSAR [Concomitant]
     Active Substance: IRINOTECAN HYDROCHLORIDE
     Dates: end: 20210510
  2. 5?FLUOROURACIL [Suspect]
     Active Substance: FLUOROURACIL
     Dates: end: 20210405
  3. LEUCOVORIN CALCIUM. [Concomitant]
     Active Substance: LEUCOVORIN CALCIUM
     Dates: end: 20210419

REACTIONS (8)
  - Chills [None]
  - Hypophagia [None]
  - Swelling face [None]
  - Disease progression [None]
  - Blister [None]
  - Varicella zoster virus infection [None]
  - Mucosal inflammation [None]
  - Toxicity to various agents [None]

NARRATIVE: CASE EVENT DATE: 20210717
